FAERS Safety Report 14415648 (Version 2)
Quarter: 2018Q1

REPORT INFORMATION
  Report Type: Spontaneous
  Country: US (occurrence: US)
  Receive Date: 20180122
  Receipt Date: 20180131
  Transmission Date: 20180509
  Serious: Yes (Death, Other)
  Sender: FDA-Public Use
  Company Number: US-BRISTOL-MYERS SQUIBB COMPANY-BMS-2018-003786

PATIENT
  Age: 71 Year
  Sex: Male
  Weight: 76.2 kg

DRUGS (4)
  1. ELIQUIS [Suspect]
     Active Substance: APIXABAN
     Indication: POLYCYTHAEMIA VERA
     Dosage: UNK
     Route: 065
     Dates: start: 201706
  2. ARMOUR THYROID [Concomitant]
     Active Substance: THYROID, PORCINE
     Indication: THYROID DISORDER
     Dosage: 120 MG, DAILY
     Route: 048
     Dates: start: 2005
  3. CARVEDILOL. [Concomitant]
     Active Substance: CARVEDILOL
     Indication: ATRIAL RUPTURE
     Dosage: 6.25 MG, DAILY
     Route: 048
     Dates: start: 201706
  4. LYRICA [Suspect]
     Active Substance: PREGABALIN
     Indication: BACK DISORDER
     Dosage: 150 MG, BID
     Route: 048
     Dates: start: 2007

REACTIONS (4)
  - Pulmonary oedema [Fatal]
  - Product use in unapproved indication [Unknown]
  - Cardiac failure congestive [Fatal]
  - Weight decreased [Unknown]

NARRATIVE: CASE EVENT DATE: 201706
